FAERS Safety Report 24391683 (Version 1)
Quarter: 2024Q4

REPORT INFORMATION
  Report Type: Report from Study
  Country: MY (occurrence: MY)
  Receive Date: 20241003
  Receipt Date: 20241003
  Transmission Date: 20250115
  Serious: Yes (Death, Other)
  Sender: PFIZER
  Company Number: MY-TAKEDA-2024TUS002587

PATIENT
  Age: 59 Year
  Sex: Female

DRUGS (1)
  1. BRENTUXIMAB VEDOTIN [Suspect]
     Active Substance: BRENTUXIMAB VEDOTIN
     Indication: Hodgkin^s disease refractory
     Dosage: 100 MILLIGRAM, UNSPECIFIED FREQUENCY
     Route: 042
     Dates: start: 20220128, end: 20231113

REACTIONS (2)
  - Death [Fatal]
  - Product distribution issue [Unknown]

NARRATIVE: CASE EVENT DATE: 20231201
